FAERS Safety Report 4430182-7 (Version None)
Quarter: 2004Q3

REPORT INFORMATION
  Report Type: 
  Country: None (occurrence: None)
  Receive Date: 20040816
  Receipt Date: 20040802
  Transmission Date: 20050211
  Serious: Yes (Death)
  Sender: FDA-Public Use
  Company Number: 2004-BP-05262NB

PATIENT
  Age: 75 Year
  Sex: Male

DRUGS (9)
  1. MEXITIL [Suspect]
     Indication: ARRHYTHMIA
     Dosage: 200 MG (100 MG) PO
     Route: 048
     Dates: start: 20040426, end: 20040607
  2. DAI-KENCHU-TO (HERBAL MEDICINE) [Suspect]
     Indication: CONSTIPATION
     Dosage: 7.5 G (NR) PO
     Route: 048
     Dates: start: 20040421, end: 20040607
  3. SOLDOLON [Concomitant]
     Indication: GASTRITIS
     Dosage: 300 MG (NR) PO
     Route: 048
     Dates: start: 20040426, end: 20040607
  4. HALCION [Suspect]
     Indication: INSOMNIA
     Dosage: 0.125 MG (NR) PO
     Route: 048
     Dates: start: 20040426, end: 20040606
  5. CATACLOT (OZAGREL SODIUM) [Concomitant]
     Indication: CEREBRAL INFARCTION
     Dosage: 160 MG (NR) IV
     Route: 042
     Dates: start: 20040526, end: 20040606
  6. MERISLON (BETAHISTINE HYDROCHLORIDE) [Concomitant]
  7. ASPIRIN [Concomitant]
  8. TRAVELMIN (TRAVELMIN) [Concomitant]
  9. CEROCRAL (IFENPRODIL TARTRATE) (TA) [Concomitant]

REACTIONS (7)
  - ABNORMAL BEHAVIOUR [None]
  - CEREBRAL INFARCTION [None]
  - COMA [None]
  - DISSEMINATED INTRAVASCULAR COAGULATION [None]
  - HAEMODIALYSIS [None]
  - HEPATITIS FULMINANT [None]
  - MULTI-ORGAN FAILURE [None]
